FAERS Safety Report 10087278 (Version 1)
Quarter: 2014Q2

REPORT INFORMATION
  Report Type: Spontaneous
  Country: US (occurrence: US)
  Receive Date: 20140418
  Receipt Date: 20140418
  Transmission Date: 20141212
  Serious: Yes (Hospitalization)
  Sender: FDA-Public Use
  Company Number: US-TAKEDA-2014TUS002875

PATIENT
  Age: 50 Year
  Sex: Male

DRUGS (1)
  1. COLCHICINE [Suspect]
     Indication: PERICARDITIS
     Dosage: UNK

REACTIONS (2)
  - Purulent pericarditis [Recovering/Resolving]
  - Off label use [Recovering/Resolving]
